FAERS Safety Report 10210943 (Version 2)
Quarter: 2014Q2

REPORT INFORMATION
  Report Type: Spontaneous
  Country: US (occurrence: US)
  Receive Date: 20140602
  Receipt Date: 20140618
  Transmission Date: 20141212
  Serious: No
  Sender: FDA-Public Use
  Company Number: US-EISAI INC-AP356-00813-SPO-US

PATIENT
  Sex: Female

DRUGS (4)
  1. BELVIQ (LORCASERIN HYDROCHLORIDE) [Suspect]
     Indication: PRODUCT USED FOR UNKNOWN INDICATION
     Dosage: UNKNOWN
     Route: 048
  2. ARICEPT [Concomitant]
  3. GABAPENTIN [Concomitant]
  4. KLONOPIN [Concomitant]

REACTIONS (2)
  - Hallucination [Unknown]
  - Tremor [Unknown]
